FAERS Safety Report 8484421-6 (Version None)
Quarter: 2012Q3

REPORT INFORMATION
  Report Type: 
  Country: None (occurrence: None)
  Receive Date: 20120703
  Receipt Date: 20120630
  Transmission Date: 20120928
  Serious: Yes (Death)
  Sender: FDA-Public Use
  Company Number: PHHY2012MX056470

PATIENT
  Sex: Female

DRUGS (1)
  1. EXFORGE HCT [Suspect]
     Dosage: 1 DF (320MG VAL/10 MG AMLO/25 MG HCT)
     Dates: start: 20110901

REACTIONS (1)
  - MYOCARDIAL INFARCTION [None]
